FAERS Safety Report 4446197-9 (Version None)
Quarter: 2004Q3

REPORT INFORMATION
  Report Type: 
  Country: None (occurrence: None)
  Receive Date: 20040907
  Receipt Date: 20040820
  Transmission Date: 20050211
  Serious: Yes (Hospitalization)
  Sender: FDA-Public Use
  Company Number: D-04-043

PATIENT
  Sex: Male
  Weight: 90.7194 kg

DRUGS (8)
  1. JANTOVEN (WARFARIN SODIUM) 5 MG [Suspect]
     Indication: COAGULOPATHY
     Dosage: 5 MG QD PO
     Route: 048
     Dates: start: 20040501, end: 20040601
  2. JANTOVEN (WARFARIN SODIUM) 5 MG [Suspect]
     Indication: PROPHYLAXIS
     Dosage: 5 MG QD PO
     Route: 048
     Dates: start: 20040501, end: 20040601
  3. LIPITOR [Concomitant]
  4. PLAVIX [Concomitant]
  5. ACTOS [Concomitant]
  6. MONOPRIL [Concomitant]
  7. NORVASC [Concomitant]
  8. TOPROL-XL [Concomitant]

REACTIONS (2)
  - HAEMORRHAGE [None]
  - INTERNATIONAL NORMALISED RATIO INCREASED [None]
